FAERS Safety Report 6522787-4 (Version None)
Quarter: 2009Q4

REPORT INFORMATION
  Report Type: 
  Country: None (occurrence: None)
  Receive Date: 20091230
  Receipt Date: 20091218
  Transmission Date: 20100525
  Serious: Yes (Hospitalization)
  Sender: FDA-Public Use
  Company Number: IT-PFIZER INC-2009312586

PATIENT
  Age: 32 Year
  Sex: Female

DRUGS (1)
  1. ZELDOX [Suspect]
     Indication: SCHIZOPHRENIA
     Dosage: 80 MG
     Route: 048
     Dates: start: 20091202, end: 20091204

REACTIONS (1)
  - TONIC CLONIC MOVEMENTS [None]
